FAERS Safety Report 19261540 (Version 1)
Quarter: 2021Q2

REPORT INFORMATION
  Report Type: Spontaneous
  Country: US (occurrence: US)
  Receive Date: 20210515
  Receipt Date: 20210515
  Transmission Date: 20210717
  Serious: No
  Sender: FDA-Public Use
  Company Number: US-JNJFOC-20210512260

PATIENT
  Sex: Female

DRUGS (1)
  1. WOMENS ROGAINE UNSCENTED [Suspect]
     Active Substance: MINOXIDIL
     Indication: ALOPECIA
     Route: 061

REACTIONS (6)
  - Insomnia [Unknown]
  - Application site pruritus [Unknown]
  - Off label use [Unknown]
  - Adverse event [Unknown]
  - Product use in unapproved indication [Unknown]
  - Paranoia [Unknown]
